FAERS Safety Report 20846790 (Version 1)
Quarter: 2022Q2

REPORT INFORMATION
  Report Type: Spontaneous
  Country: NL (occurrence: NL)
  Receive Date: 20220519
  Receipt Date: 20220519
  Transmission Date: 20220721
  Serious: Yes (Other)
  Sender: FDA-Public Use
  Company Number: None

PATIENT
  Age: 71 Year
  Sex: Female
  Weight: 65 kg

DRUGS (2)
  1. MONTELUKAST [Suspect]
     Active Substance: MONTELUKAST SODIUM
     Dosage: 1 DOSAGE FORMS DAILY; MONTELUKAST TABLET COATED 10MG / BRAND NAME NOT SPECIFIED
     Route: 065
     Dates: start: 20190604, end: 20201014
  2. LEVOCETIRIZINE [Suspect]
     Active Substance: LEVOCETIRIZINE
     Indication: Asthma
     Dosage: 1 DOSAGE FORMS DAILY; LEVOCETIRIZINE TABLET FO 5MG / BRAND NAME NOT SPECIFIED
     Route: 065
     Dates: start: 20190604, end: 20201014

REACTIONS (5)
  - Angina pectoris [Recovered/Resolved]
  - Malaise [Unknown]
  - Hypertension [Recovered/Resolved]
  - Listless [Unknown]
  - Muscle spasms [Recovered/Resolved]

NARRATIVE: CASE EVENT DATE: 20190918
